FAERS Safety Report 21892604 (Version 1)
Quarter: 2023Q1

REPORT INFORMATION
  Report Type: Spontaneous
  Country: US (occurrence: US)
  Receive Date: 20230120
  Receipt Date: 20230120
  Transmission Date: 20230417
  Serious: No
  Sender: FDA-Public Use
  Company Number: ENDG22-05513

PATIENT
  Sex: Male

DRUGS (1)
  1. ENDOCET [Suspect]
     Active Substance: ACETAMINOPHEN\OXYCODONE HYDROCHLORIDE
     Indication: Pain
     Dosage: UNK UNKNOWN, UNKNOWN
     Route: 048
     Dates: start: 2017

REACTIONS (5)
  - Neuropathy peripheral [Recovered/Resolved]
  - Arthritis [Recovered/Resolved]
  - Colitis [Recovered/Resolved]
  - Flatulence [Recovered/Resolved]
  - Drug ineffective [Unknown]
